FAERS Safety Report 25306620 (Version 1)
Quarter: 2025Q2

REPORT INFORMATION
  Report Type: Spontaneous
  Country: US (occurrence: None)
  Receive Date: 20250509
  Receipt Date: 20250509
  Transmission Date: 20250717
  Serious: Yes (Life-Threatening)
  Sender: FDA-CTU
  Company Number: None

PATIENT
  Age: 62 Year
  Sex: Male

DRUGS (2)
  1. LEVOPHED [Suspect]
     Active Substance: NOREPINEPHRINE BITARTRATE
  2. Baxter Novum IQ IV pump [Concomitant]

REACTIONS (5)
  - Blood pressure decreased [None]
  - Dialysis [None]
  - Device failure [None]
  - Device malfunction [None]
  - Incorrect drug administration rate [None]

NARRATIVE: CASE EVENT DATE: 20250508
